FAERS Safety Report 6903405-X (Version None)
Quarter: 2010Q3

REPORT INFORMATION
  Report Type: 
  Country: None (occurrence: None)
  Receive Date: 20100803
  Receipt Date: 20080926
  Transmission Date: 20110219
  Serious: Yes (Other)
  Sender: FDA-Public Use
  Company Number: US-PFIZER INC-2008082315

PATIENT
  Sex: Female
  Weight: 107 kg

DRUGS (11)
  1. LYRICA [Suspect]
     Indication: FIBROMYALGIA
     Dates: start: 20080902
  2. LYRICA [Suspect]
     Indication: ARTHRITIS
  3. LYRICA [Suspect]
     Indication: PAIN IN EXTREMITY
  4. MONTELUKAST SODIUM [Concomitant]
  5. ADVAIR DISKUS 100/50 [Concomitant]
     Dosage: 250/50
  6. HYDROCODONE BITARTRATE [Concomitant]
     Dosage: 7.5-500 MG
  7. METHADONE HCL [Concomitant]
  8. OMEPRAZOLE [Concomitant]
     Indication: GASTROOESOPHAGEAL REFLUX DISEASE
  9. METOPROLOL [Concomitant]
  10. AVAPRO [Concomitant]
  11. LEVOTHYROXINE [Concomitant]

REACTIONS (9)
  - DYSPNOEA [None]
  - FEAR [None]
  - GAIT DISTURBANCE [None]
  - JOINT SWELLING [None]
  - LIP SWELLING [None]
  - MIDDLE INSOMNIA [None]
  - NASAL CONGESTION [None]
  - NASAL OEDEMA [None]
  - OEDEMA MOUTH [None]
